FAERS Safety Report 4512220-6 (Version None)
Quarter: 2004Q4

REPORT INFORMATION
  Report Type: 
  Country: None (occurrence: None)
  Receive Date: 20041123
  Receipt Date: 20041116
  Transmission Date: 20050328
  Serious: Yes (Hospitalization)
  Sender: FDA-Public Use
  Company Number: 2004077345

PATIENT
  Age: 80 Year
  Sex: Female
  Weight: 55.4 kg

DRUGS (3)
  1. NORVASC [Suspect]
     Indication: HYPERTENSION
     Dosage: 5 MG ( 5 MG, 1 IN 1 D), ORAL
     Route: 048
     Dates: start: 20040908, end: 20041005
  2. UBIDECARENONE (UBIDECARENONE) [Concomitant]
  3. PRAVASTATIN SODIUM [Concomitant]

REACTIONS (4)
  - ERYTHEMA MULTIFORME [None]
  - LYMPHOCYTE COUNT DECREASED [None]
  - PYREXIA [None]
  - VIRAL INFECTION [None]
